FAERS Safety Report 11861519 (Version 1)
Quarter: 2015Q4

REPORT INFORMATION
  Report Type: Spontaneous
  Country: US (occurrence: US)
  Receive Date: 20151222
  Receipt Date: 20151222
  Transmission Date: 20160305
  Serious: Yes (Hospitalization)
  Sender: FDA-Public Use
  Company Number: US-MYLANLABS-2015M1046284

PATIENT

DRUGS (3)
  1. ASPIRIN                            /00002701/ [Concomitant]
     Active Substance: ASPIRIN
     Dosage: 325 MG/DAY
     Route: 065
  2. VERAPAMIL [Suspect]
     Active Substance: VERAPAMIL HYDROCHLORIDE
     Indication: VASOSPASM
     Dosage: 10 MG
     Route: 013
  3. NIMODIPINE. [Concomitant]
     Active Substance: NIMODIPINE
     Dosage: 60 MG EVERY 4 HOURS
     Route: 065

REACTIONS (2)
  - Brain herniation [Recovering/Resolving]
  - Ischaemic stroke [Recovering/Resolving]
